FAERS Safety Report 6280146-6 (Version None)
Quarter: 2009Q3

REPORT INFORMATION
  Report Type: 
  Country: None (occurrence: None)
  Receive Date: 20090723
  Receipt Date: 20090714
  Transmission Date: 20100115
  Serious: Yes (Hospitalization)
  Sender: FDA-Public Use
  Company Number: PHHO2009TW07922

PATIENT
  Sex: Male

DRUGS (2)
  1. RAD 666 RAD+TAB [Suspect]
     Indication: RENAL TRANSPLANT
     Dosage: 0.5 MG /24 HRS
     Route: 048
     Dates: start: 20080828, end: 20090702
  2. MYFORTIC [Suspect]
     Indication: RENAL TRANSPLANT
     Dosage: 1800 MG
     Route: 048
     Dates: start: 20080828, end: 20090702

REACTIONS (3)
  - HAEMATURIA [None]
  - PYREXIA [None]
  - TRANSITIONAL CELL CARCINOMA [None]
